FAERS Safety Report 12051892 (Version 1)
Quarter: 2016Q1

REPORT INFORMATION
  Report Type: Report from Study
  Country: US (occurrence: US)
  Receive Date: 20160209
  Receipt Date: 20160209
  Transmission Date: 20160526
  Serious: Yes (Death, Hospitalization, Other)
  Sender: FDA-Public Use
  Company Number: US-ROCHE-1704877

PATIENT
  Age: 56 Year
  Sex: Male

DRUGS (3)
  1. CETUXIMAB [Suspect]
     Active Substance: CETUXIMAB
     Indication: METASTATIC RENAL CELL CARCINOMA
     Dosage: 400 MG/M2 IV OVER 120 MIN ON DAY 1
     Route: 042
     Dates: start: 20070307, end: 20070327
  2. BEVACIZUMAB [Suspect]
     Active Substance: BEVACIZUMAB
     Indication: METASTATIC RENAL CELL CARCINOMA
     Dosage: 10 MG/KG/DAY IV BOLUS ON DAYS 1 AND 15, 1 CYCLE: 28 DAYS
     Route: 040
     Dates: start: 20070307, end: 20070327
  3. ERLOTINIB [Suspect]
     Active Substance: ERLOTINIB
     Indication: METASTATIC RENAL CELL CARCINOMA
     Dosage: 50 MG/DAY PO QD ON DAYS 1-28, 1 CYCLE: 28 DAYS?LAST DOSE PRIOR TO SAE: 07/MAR/2007
     Route: 048
     Dates: start: 20070307, end: 20070327

REACTIONS (6)
  - Hyperkalaemia [Unknown]
  - Hyponatraemia [Unknown]
  - Nausea [Unknown]
  - Ascites [Unknown]
  - Death [Fatal]
  - Dehydration [Unknown]

NARRATIVE: CASE EVENT DATE: 20070320
